FAERS Safety Report 8174867-8 (Version None)
Quarter: 2012Q1

REPORT INFORMATION
  Report Type: 
  Country: None (occurrence: None)
  Receive Date: 20120229
  Receipt Date: 20110314
  Transmission Date: 20120608
  Serious: No
  Sender: FDA-Public Use
  Company Number: US-GLAXOSMITHKLINE-A0918026A

PATIENT
  Age: 46 Year
  Sex: Female

DRUGS (2)
  1. TOPAMAX [Concomitant]
  2. VALTREX [Suspect]
     Indication: PRODUCT USED FOR UNKNOWN INDICATION
     Dosage: 1G THREE TIMES PER DAY
     Route: 048
     Dates: start: 20110304, end: 20110309

REACTIONS (2)
  - HERPES ZOSTER [None]
  - URTICARIA [None]
